FAERS Safety Report 6182333-4 (Version None)
Quarter: 2009Q2

REPORT INFORMATION
  Report Type: 
  Country: None (occurrence: None)
  Receive Date: 20090505
  Receipt Date: 20090423
  Transmission Date: 20091009
  Serious: Yes (Life-Threatening, Hospitalization)
  Sender: FDA-Public Use
  Company Number: 2009AP001666

PATIENT
  Age: 52 Year
  Sex: Female

DRUGS (5)
  1. CITALOPRAM HYDROBROMIDE [Suspect]
     Indication: MULTIPLE SCLEROSIS
     Dosage: 20 MG; QD PO
     Route: 048
  2. DICLOFENAC (DICLOFENAC) [Suspect]
     Indication: MULTIPLE SCLEROSIS
     Dosage: 75 MG; BID PO
     Route: 048
  3. BACLOFEN [Concomitant]
  4. CARBAMAZEPINE [Concomitant]
  5. CITALOPRAM HYDROBROMIDE [Concomitant]

REACTIONS (2)
  - ABDOMINAL DISCOMFORT [None]
  - VOMITING [None]
